FAERS Safety Report 6920000-7 (Version None)
Quarter: 2010Q3

REPORT INFORMATION
  Report Type: 
  Country: None (occurrence: None)
  Receive Date: 20100809
  Receipt Date: 20100726
  Transmission Date: 20110219
  Serious: Yes (Other)
  Sender: FDA-Public Use
  Company Number: DSJ-2010-12452

PATIENT
  Age: 67 Year
  Sex: Female

DRUGS (8)
  1. AMLODIPINE BESYLATE AND OLMESARTAN MEDOXOMIL [Suspect]
     Indication: HYPERTENSION
     Dosage: 40/10 MG (1 IN 1 D),40/5 MG PER ORAL
     Route: 048
     Dates: start: 20100701, end: 20100701
  2. AMLODIPINE BESYLATE AND OLMESARTAN MEDOXOMIL [Suspect]
     Indication: HYPERTENSION
     Dosage: 40/10 MG (1 IN 1 D),40/5 MG PER ORAL
     Route: 048
     Dates: start: 20100701
  3. AMILORIDE HCL AND HYDROCHLOROTHIAZIDE [Suspect]
     Dosage: 25/2.5 MG (1 IN 1 D), PER ORAL
     Route: 048
     Dates: start: 20100701, end: 20100701
  4. METOPROLOL [Concomitant]
  5. PRAVASTATIN [Concomitant]
  6. AMITRIPTYLINE HCL [Concomitant]
  7. CLONIDINE [Concomitant]
  8. ASPIRIN [Concomitant]

REACTIONS (3)
  - HYPERAEMIA [None]
  - HYPERTENSION [None]
  - OEDEMA PERIPHERAL [None]
